FAERS Safety Report 7359829-2 (Version None)
Quarter: 2011Q1

REPORT INFORMATION
  Report Type: 
  Country: None (occurrence: None)
  Receive Date: 20110317
  Receipt Date: 20110219
  Transmission Date: 20110831
  Serious: No
  Sender: FDA-Public Use
  Company Number: US-B.I. PHARMACEUTICALS,INC./RIDGEFIELD-2011-BP-06366BP

PATIENT
  Age: 73 Year
  Sex: Female

DRUGS (11)
  1. DETROL LA [Concomitant]
     Indication: BLADDER DISORDER
  2. MIRALAX [Concomitant]
     Indication: CONSTIPATION
  3. POTASSIUM [Concomitant]
     Indication: SUPPLEMENTATION THERAPY
  4. METOPROLOL TARTRATE [Concomitant]
     Indication: HYPERTENSION
  5. PRADAXA [Suspect]
     Indication: ATRIAL FIBRILLATION
     Dosage: 300 MG
     Route: 048
     Dates: start: 20110201
  6. GABAPENTIN [Concomitant]
     Indication: NERVE INJURY
  7. SERTRALINE [Concomitant]
     Indication: DEPRESSION
  8. SIMVASTATIN [Concomitant]
     Indication: BLOOD CHOLESTEROL INCREASED
  9. NEXIUM [Concomitant]
     Indication: GASTROOESOPHAGEAL REFLUX DISEASE
  10. LEVOTHYROXINE SODIUM [Concomitant]
     Indication: HYPOTHYROIDISM
  11. MULTIVITAMIN [Concomitant]
     Indication: SUPPLEMENTATION THERAPY

REACTIONS (2)
  - RASH [None]
  - BLISTER [None]
